FAERS Safety Report 4883630-2 (Version None)
Quarter: 2006Q1

REPORT INFORMATION
  Report Type: 
  Country: None (occurrence: None)
  Receive Date: 20060118
  Receipt Date: 20050801
  Transmission Date: 20060701
  Serious: Yes (Hospitalization)
  Sender: FDA-Public Use
  Company Number: PHNU2005DE02716

PATIENT
  Age: 63 Year
  Sex: Female

DRUGS (1)
  1. FEMARA [Suspect]
     Indication: BREAST CANCER FEMALE
     Dosage: 2.5 MG, QD
     Route: 048
     Dates: start: 20050601

REACTIONS (6)
  - ARTERIOGRAM CORONARY NORMAL [None]
  - ELECTROCARDIOGRAM ABNORMAL [None]
  - EXTRASYSTOLES [None]
  - PALPITATIONS [None]
  - SHOULDER PAIN [None]
  - TACHYCARDIA [None]
